FAERS Safety Report 4429553-4 (Version None)
Quarter: 2004Q3

REPORT INFORMATION
  Report Type: 
  Country: None (occurrence: None)
  Receive Date: 20040819
  Receipt Date: 20040810
  Transmission Date: 20050211
  Serious: Yes (Hospitalization)
  Sender: FDA-Public Use
  Company Number: FR-GLAXOSMITHKLINE-B0341935A

PATIENT
  Age: 70 Year
  Sex: Female

DRUGS (8)
  1. DEROXAT [Suspect]
     Route: 048
     Dates: end: 20040625
  2. ASPIRIN [Suspect]
     Dosage: 75MG PER DAY
     Route: 048
     Dates: end: 20040625
  3. AMAREL [Suspect]
     Dosage: 4MG PER DAY
     Route: 048
     Dates: end: 20040625
  4. STILNOX [Suspect]
     Route: 048
     Dates: end: 20040625
  5. VASTAREL [Suspect]
     Route: 048
  6. GUTRON [Suspect]
     Dosage: 2.5MG PER DAY
     Route: 048
     Dates: end: 20040625
  7. GLUCOPHAGE [Concomitant]
     Route: 048
  8. MEDIATOR [Concomitant]
     Route: 048

REACTIONS (2)
  - GASTROINTESTINAL MUCOSAL DISORDER [None]
  - HAEMATEMESIS [None]
